FAERS Safety Report 8093061-2 (Version None)
Quarter: 2012Q1

REPORT INFORMATION
  Report Type: 
  Country: None (occurrence: None)
  Receive Date: 20120128
  Receipt Date: 20110915
  Transmission Date: 20120608
  Serious: No
  Sender: FDA-Public Use
  Company Number: PR-ABBOTT-11P-131-0855507-00

PATIENT
  Sex: Female
  Weight: 77.18 kg

DRUGS (4)
  1. PREDNISONE TAB [Concomitant]
     Indication: RHEUMATOID ARTHRITIS
     Route: 047
  2. OBSTETRIX PRENATAL [Concomitant]
     Indication: VITAMIN SUPPLEMENTATION
     Route: 048
  3. HUMIRA [Suspect]
     Indication: RHEUMATOID ARTHRITIS
     Route: 058
     Dates: start: 20090101, end: 20110301
  4. PLAQUENIL [Concomitant]
     Indication: RHEUMATOID ARTHRITIS
     Route: 048

REACTIONS (5)
  - SWELLING [None]
  - RHEUMATOID ARTHRITIS [None]
  - ARTHRALGIA [None]
  - VAGINAL HAEMORRHAGE [None]
  - GAIT DISTURBANCE [None]
